FAERS Safety Report 22090419 (Version 1)
Quarter: 2023Q1

REPORT INFORMATION
  Report Type: Spontaneous
  Country: US (occurrence: US)
  Receive Date: 20230313
  Receipt Date: 20230313
  Transmission Date: 20230417
  Serious: No
  Sender: FDA-Public Use
  Company Number: US-BAYER-2023A030230

PATIENT
  Age: 72 Year
  Sex: Female

DRUGS (2)
  1. ASTEPRO [Suspect]
     Active Substance: AZELASTINE HYDROCHLORIDE
     Indication: Hypersensitivity
     Dosage: 1 SPRAY IN EACH NOSTRIL
     Route: 045
     Dates: start: 202302, end: 20230303
  2. ASTEPRO [Suspect]
     Active Substance: AZELASTINE HYDROCHLORIDE
     Indication: Nasopharyngitis

REACTIONS (1)
  - Heart rate increased [Recovered/Resolved]
